FAERS Safety Report 5420642-4 (Version None)
Quarter: 2007Q3

REPORT INFORMATION
  Report Type: 
  Country: None (occurrence: None)
  Receive Date: 20070816
  Receipt Date: 20070717
  Transmission Date: 20080115
  Serious: Yes (Other)
  Sender: FDA-Public Use
  Company Number: 6035910

PATIENT
  Age: 51 Year
  Sex: Male

DRUGS (4)
  1. RANITIDINE [Suspect]
     Indication: GASTROOESOPHAGEAL REFLUX DISEASE
     Dosage: INTRAVENOUS; ORAL
     Route: 042
  2. WARFARIN SODIUM [Concomitant]
  3. DALTEPARIN (DALTEPARIN SODIUM) [Concomitant]
  4. PHYTONADIONE [Concomitant]

REACTIONS (7)
  - ABDOMINAL ABSCESS [None]
  - CHOLELITHIASIS [None]
  - DEEP VEIN THROMBOSIS [None]
  - HEPATITIS [None]
  - HEPATITIS CHOLESTATIC [None]
  - HEPATOTOXICITY [None]
  - THROMBOCYTHAEMIA [None]
